FAERS Safety Report 22625593 (Version 1)
Quarter: 2023Q2

REPORT INFORMATION
  Report Type: Report from Study
  Country: US (occurrence: US)
  Receive Date: 20230621
  Receipt Date: 20230621
  Transmission Date: 20230721
  Serious: Yes (Other)
  Sender: FDA-Public Use
  Company Number: US-BAYER-2023A086370

PATIENT

DRUGS (1)
  1. ALKA-SELTZER ORIGINAL [Suspect]
     Active Substance: ANHYDROUS CITRIC ACID\ASPIRIN\SODIUM BICARBONATE
     Indication: Gastrointestinal disorder
     Dosage: THEY COME IN SACHETS WITH TWO EACH AND EASY TO POUR IN THE GLASS AND THEY DISSOLVE IN WATER
     Route: 048

REACTIONS (1)
  - Drug dependence [Unknown]
